FAERS Safety Report 24119135 (Version 3)
Quarter: 2024Q3

REPORT INFORMATION
  Report Type: Spontaneous
  Country: AT (occurrence: AT)
  Receive Date: 20240722
  Receipt Date: 20240905
  Transmission Date: 20241017
  Serious: Yes (Other)
  Sender: ABBVIE
  Company Number: AT-ABBVIE-5842493

PATIENT
  Age: 63 Year
  Sex: Male

DRUGS (3)
  1. VENETOCLAX [Suspect]
     Active Substance: VENETOCLAX
     Indication: Chronic lymphocytic leukaemia recurrent
     Route: 048
     Dates: start: 201905, end: 201908
  2. VENETOCLAX [Suspect]
     Active Substance: VENETOCLAX
     Indication: Chronic lymphocytic leukaemia recurrent
     Route: 048
     Dates: start: 202107, end: 202201
  3. RITUXIMAB [Concomitant]
     Active Substance: RITUXIMAB
     Indication: Product used for unknown indication
     Dates: start: 2019

REACTIONS (9)
  - Pancytopenia [Not Recovered/Not Resolved]
  - Anaemia [Unknown]
  - Diffuse large B-cell lymphoma [Unknown]
  - Thrombocytopenia [Unknown]
  - Richter^s syndrome [Unknown]
  - Lymphadenopathy [Unknown]
  - Lymphadenopathy [Not Recovered/Not Resolved]
  - Diffuse large B-cell lymphoma [Unknown]
  - Diffuse large B-cell lymphoma [Unknown]

NARRATIVE: CASE EVENT DATE: 20220101
